FAERS Safety Report 4843683-4 (Version None)
Quarter: 2005Q4

REPORT INFORMATION
  Report Type: 
  Country: None (occurrence: None)
  Receive Date: 20051202
  Receipt Date: 20051129
  Transmission Date: 20060501
  Serious: Yes (Death, Life-Threatening)
  Sender: FDA-Public Use
  Company Number: US-BRACCO-BDI-007764

PATIENT
  Age: 79 Year
  Sex: Male

DRUGS (1)
  1. GASTROGRAFIN [Suspect]
     Dosage: SOLUTION OF 30 ML AND 1000 ML WATER
     Route: 048
     Dates: start: 20050112, end: 20050112

REACTIONS (2)
  - ASPIRATION [None]
  - PULMONARY OEDEMA [None]
